FAERS Safety Report 20613647 (Version 1)
Quarter: 2022Q1

REPORT INFORMATION
  Report Type: Spontaneous
  Country: TW (occurrence: TW)
  Receive Date: 20220319
  Receipt Date: 20220319
  Transmission Date: 20220424
  Serious: Yes (Other)
  Sender: FDA-Public Use
  Company Number: TW-AMGEN-TWNSP2022044257

PATIENT
  Age: 43 Year
  Sex: Female

DRUGS (5)
  1. BEVACIZUMAB [Suspect]
     Active Substance: BEVACIZUMAB
     Indication: Angiosarcoma metastatic
     Dosage: UNK UNK, 3 TIMES/WK
     Route: 065
  2. PACLITAXEL [Suspect]
     Active Substance: PACLITAXEL
     Indication: Lung cancer metastatic
     Dosage: UNK UNK, QWK
     Route: 065
  3. PAZOPANIB [Concomitant]
     Active Substance: PAZOPANIB
     Route: 048
  4. IFOSFAMIDE [Concomitant]
     Active Substance: IFOSFAMIDE
     Dosage: UNK UNK, QMO
  5. DOXORUBICIN [Concomitant]
     Active Substance: DOXORUBICIN
     Dosage: UNK UNK, QMO

REACTIONS (2)
  - Angiosarcoma metastatic [Unknown]
  - Off label use [Unknown]
